FAERS Safety Report 5123611-7 (Version None)
Quarter: 2006Q4

REPORT INFORMATION
  Report Type: 
  Country: None (occurrence: None)
  Receive Date: 20060910
  Receipt Date: 20050715
  Transmission Date: 20070319
  Serious: Yes (Other)
  Sender: FDA-Public Use
  Company Number: US_000440344

PATIENT
  Age: 48 Year
  Sex: Female
  Weight: 68.2 kg

DRUGS (8)
  1. HUMULIN R [Suspect]
     Indication: DIABETES MELLITUS INSULIN-DEPENDENT
     Dosage: AS NEEDED, SUBCUTANEOUS
     Route: 058
     Dates: start: 19870101
  2. HUMULIN(HUMAN INSULIN (RNDA ORIGIN) LENTE) VIAL [Suspect]
     Indication: DIABETES MELLITUS INSULIN-DEPENDENT
     Dosage: 16 U, DAILY (1/D), SUBCUTANEOUS
     Route: 058
     Dates: start: 19850101
  3. HUMULIN N [Suspect]
     Indication: DIABETES MELLITUS
     Dates: start: 20000501, end: 20000501
  4. ILETIN [Suspect]
     Indication: DIABETES MELLITUS INSULIN-DEPENDENT
     Dosage: 17 U, DAILY (1/D)
     Dates: start: 20050601
  5. ILETIN [Suspect]
     Indication: DIABETES MELLITUS INSULIN-DEPENDENT
     Dosage: 30 U, DAILY (1/D)
     Dates: start: 19600101
  6. ILETIN [Suspect]
     Indication: DIABETES MELLITUS INSULIN-DEPENDENT
     Dosage: SUBCUTANEOUS
     Route: 058
     Dates: start: 19930101, end: 19990101
  7. ILETIN [Suspect]
     Indication: DIABETES MELLITUS INSULIN-DEPENDENT
     Dosage: SUBCUTANEOUS
     Route: 058
     Dates: start: 19600101, end: 20000501
  8. NOVOLIN R [Concomitant]

REACTIONS (19)
  - ARRHYTHMIA [None]
  - BLOOD GLUCOSE DECREASED [None]
  - BLOOD GLUCOSE FLUCTUATION [None]
  - BLOOD GLUCOSE INCREASED [None]
  - CONVULSION [None]
  - DRUG HYPERSENSITIVITY [None]
  - DRUG INEFFECTIVE [None]
  - HYPERHIDROSIS [None]
  - HYPOAESTHESIA [None]
  - HYPOGLYCAEMIA [None]
  - KETOACIDOSIS [None]
  - LOSS OF CONSCIOUSNESS [None]
  - MENOPAUSE [None]
  - NEUROPATHY PERIPHERAL [None]
  - NIGHT SWEATS [None]
  - PAIN IN EXTREMITY [None]
  - PALPITATIONS [None]
  - PARAESTHESIA [None]
  - VISUAL ACUITY REDUCED [None]
